FAERS Safety Report 19933168 (Version 5)
Quarter: 2022Q2

REPORT INFORMATION
  Report Type: Report from Study
  Country: US (occurrence: US)
  Receive Date: 20211008
  Receipt Date: 20220613
  Transmission Date: 20220720
  Serious: No
  Sender: FDA-Public Use
  Company Number: NVSC2021US230059

PATIENT

DRUGS (2)
  1. COSENTYX [Suspect]
     Active Substance: SECUKINUMAB
     Indication: Psoriasis
     Dosage: UNK UNK, UNKNOWN
     Route: 065
  2. COSENTYX [Suspect]
     Active Substance: SECUKINUMAB
     Dosage: UNK
     Route: 065

REACTIONS (5)
  - Pruritus [Unknown]
  - Fatigue [Unknown]
  - Weight increased [Unknown]
  - Disturbance in attention [Unknown]
  - Psoriasis [Unknown]
